FAERS Safety Report 4560175-0 (Version None)
Quarter: 2005Q1

REPORT INFORMATION
  Report Type: 
  Country: None (occurrence: None)
  Receive Date: 20050125
  Receipt Date: 20050105
  Transmission Date: 20050727
  Serious: Yes (Death, Hospitalization)
  Sender: FDA-Public Use
  Company Number: 200510098US

PATIENT
  Age: 87 Year
  Sex: Male
  Weight: 69 kg

DRUGS (3)
  1. TAXOTERE [Suspect]
     Indication: GASTRIC CANCER
     Route: 042
     Dates: start: 20041201, end: 20041208
  2. CARBOPLATIN [Suspect]
     Indication: GASTRIC CANCER
     Route: 042
     Dates: start: 20041201, end: 20041208
  3. XELODA [Suspect]
     Indication: GASTRIC CANCER
     Route: 048
     Dates: start: 20041201, end: 20041210

REACTIONS (6)
  - ANAEMIA [None]
  - ASTHENIA [None]
  - CHEST X-RAY ABNORMAL [None]
  - DEHYDRATION [None]
  - FALL [None]
  - RENAL FAILURE ACUTE [None]
